FAERS Safety Report 13499511 (Version 1)
Quarter: 2017Q2

REPORT INFORMATION
  Report Type: Spontaneous
  Country: GB (occurrence: GB)
  Receive Date: 20170501
  Receipt Date: 20170501
  Transmission Date: 20170830
  Serious: Yes (Other)
  Sender: FDA-Public Use
  Company Number: GB-MYLANLABS-2017M1026154

PATIENT

DRUGS (23)
  1. FUROSEMIDE. [Concomitant]
     Active Substance: FUROSEMIDE
     Dosage: IN THE MORNING.
     Dates: start: 20161103
  2. PANTOPRAZOLE [Concomitant]
     Active Substance: PANTOPRAZOLE
     Dosage: TAKE ONE OR TWO DAILY
     Dates: start: 20161103
  3. CODEINE [Concomitant]
     Active Substance: CODEINE
     Dosage: 1 TO 4 TABLETS EVERY 4 HOURS WHEN REQUIRED
     Dates: start: 20170103
  4. CORSODYL [Concomitant]
     Active Substance: CHLORHEXIDINE GLUCONATE
     Dosage: 10 ML, BID
     Route: 048
     Dates: start: 20161103
  5. CITALOPRAM [Concomitant]
     Active Substance: CITALOPRAM HYDROBROMIDE
     Dosage: 40 MG, QD
     Dates: start: 20161103
  6. EPLERENONE. [Concomitant]
     Active Substance: EPLERENONE
     Dosage: 0.5 DF, QD
     Dates: start: 20161103
  7. SIMVASTATIN. [Concomitant]
     Active Substance: SIMVASTATIN
     Dosage: EVERY NIGHT.
     Dates: start: 20161103
  8. WARFARIN [Concomitant]
     Active Substance: WARFARIN
     Dosage: 1MG, 5MG, 3MG, 500MCG, AS DIRECTED.
     Dates: start: 20161103
  9. XYLOPROCT [Concomitant]
     Dosage: APPLY TWICE A DAY AND AFTER BOWELS OPEN.^5%/0.275%
     Dates: start: 20170217
  10. ALENDRONATE [Suspect]
     Active Substance: ALENDRONATE SODIUM
     Dosage: 70MG/100ML
     Route: 048
     Dates: start: 20170409
  11. CALCICHEW D3 [Concomitant]
     Active Substance: CALCIUM\CHOLECALCIFEROL
     Dosage: 1 DF, BID
     Dates: start: 20170413
  12. E45 [Concomitant]
     Active Substance: LANOLIN\LIGHT MINERAL OIL\PARAFFIN
     Dosage: USE AS SOAP
     Dates: start: 20161103
  13. LACTULOSE. [Concomitant]
     Active Substance: LACTULOSE
     Dosage: 3.1-3.7G/5ML.10- 15ML TWICE A DAY WHEN REQUIRED
     Route: 048
     Dates: start: 20160503
  14. CAPSAICIN. [Concomitant]
     Active Substance: CAPSAICIN
     Dosage: APPLY FOUR TIMES A DAY.
     Dates: start: 20161103
  15. GABAPENTIN. [Concomitant]
     Active Substance: GABAPENTIN
     Dosage: 300 MG, BID
     Dates: start: 20170117
  16. OXYBUTYNIN [Concomitant]
     Active Substance: OXYBUTYNIN
     Dosage: 5 MG, BID
     Dates: start: 20161103
  17. ACCRETE D3 [Concomitant]
     Dosage: 1 DF, BID
     Dates: start: 20170404, end: 20170413
  18. GAVISCON ADVANCE [Concomitant]
     Active Substance: POTASSIUM BICARBONATE\SODIUM ALGINATE
     Dosage: 1-2 FOUR TIMES A DAY WHEN REQUIRED
     Dates: start: 20161103
  19. NITROFURANTOIN. [Concomitant]
     Active Substance: NITROFURANTOIN
     Dosage: AT NIGHT.
     Dates: start: 20170117
  20. BISOPROLOL [Concomitant]
     Active Substance: BISOPROLOL
     Dosage: 2.5 MG, QD
     Dates: start: 20161103
  21. CANDESARTAN. [Concomitant]
     Active Substance: CANDESARTAN
     Dosage: 8MG, 16MG
     Dates: start: 20170117
  22. CLOTRIMAZOLE. [Concomitant]
     Active Substance: CLOTRIMAZOLE
     Dosage: APPLY TWO TO THREE TIMES DAILY
     Dates: start: 20170217
  23. LORATADINE. [Concomitant]
     Active Substance: LORATADINE
     Dosage: 10 MG, QD
     Dates: start: 20161103

REACTIONS (6)
  - Lip swelling [Recovering/Resolving]
  - Diarrhoea [Recovering/Resolving]
  - Skin burning sensation [Recovering/Resolving]
  - Abdominal pain upper [Recovering/Resolving]
  - Eyelid oedema [Recovering/Resolving]
  - Hypersensitivity [Recovering/Resolving]

NARRATIVE: CASE EVENT DATE: 20170410
